FAERS Safety Report 18346793 (Version 3)
Quarter: 2020Q4

REPORT INFORMATION
  Report Type: Spontaneous
  Country: JP (occurrence: JP)
  Receive Date: 20201005
  Receipt Date: 20201123
  Transmission Date: 20210114
  Serious: Yes (Hospitalization, Other)
  Sender: FDA-Public Use
  Company Number: JP-009507513-2009JPN002919J

PATIENT
  Age: 63 Year
  Sex: Male
  Weight: 61 kg

DRUGS (5)
  1. DESALEX TABLETS 5MG [Concomitant]
     Active Substance: DESLORATADINE
     Indication: PRURIGO
     Dosage: 5 MILLIGRAM, QD
     Route: 048
  2. NIFEDIPINE CR [Concomitant]
     Active Substance: NIFEDIPINE
     Indication: HYPERTENSION
     Dosage: 20 MILLIGRAM, QD
     Route: 048
  3. ROSUVASTATIN. [Concomitant]
     Active Substance: ROSUVASTATIN
     Indication: DYSLIPIDAEMIA
     Dosage: 2.5 MILLIGRAM, QD
     Route: 048
  4. JANUVIA [Suspect]
     Active Substance: SITAGLIPTIN PHOSPHATE
     Indication: TYPE 2 DIABETES MELLITUS
     Dosage: 50 MILLIGRAM/DAY
     Route: 048
     Dates: start: 201902, end: 20200405
  5. AZILVA [Concomitant]
     Active Substance: AZILSARTAN KAMEDOXOMIL
     Indication: HYPERTENSION
     Dosage: 30 MILLIGRAM, QD
     Route: 048

REACTIONS (1)
  - Dropped head syndrome [Recovering/Resolving]

NARRATIVE: CASE EVENT DATE: 20191210
